APPROVED DRUG PRODUCT: PROGRAF
Active Ingredient: TACROLIMUS
Strength: EQ 5MG BASE
Dosage Form/Route: CAPSULE;ORAL
Application: N050708 | Product #002 | TE Code: AB
Applicant: ASTELLAS PHARMA US INC
Approved: Apr 8, 1994 | RLD: Yes | RS: Yes | Type: RX

EXCLUSIVITY:
Code: ODE-360 | Date: Jul 16, 2028